FAERS Safety Report 5030761-2 (Version None)
Quarter: 2006Q2

REPORT INFORMATION
  Report Type: 
  Country: None (occurrence: None)
  Receive Date: 20060615
  Receipt Date: 20060602
  Transmission Date: 20061013
  Serious: Yes (Hospitalization)
  Sender: FDA-Public Use
  Company Number: 2006BH010668

PATIENT
  Age: 23 Year
  Sex: Female

DRUGS (7)
  1. LORAZEPAM [Suspect]
     Indication: SCHIZOPHRENIA
  2. LORAZEPAM [Suspect]
     Indication: SCHIZOPHRENIA, UNDIFFERENTIATED TYPE
  3. RISPERDAL [Suspect]
     Indication: DRUG USE FOR UNKNOWN INDICATION
  4. MIRTAZAPINE [Suspect]
     Indication: DRUG USE FOR UNKNOWN INDICATION
     Dosage: 30 MG;
     Dates: start: 20060102, end: 20060108
  5. HALDOL [Concomitant]
  6. PSYCHOPAX [Concomitant]
  7. DOMINAL (PROTHIPENDYL HYDROCHLORIDE) [Concomitant]

REACTIONS (3)
  - HEPATIC STEATOSIS [None]
  - HEPATOCELLULAR DAMAGE [None]
  - HYPERTRIGLYCERIDAEMIA [None]
